FAERS Safety Report 21037311 (Version 1)
Quarter: 2022Q3

REPORT INFORMATION
  Report Type: Other
  Country: CA (occurrence: None)
  Receive Date: 20220703
  Receipt Date: 20220703
  Transmission Date: 20221026
  Serious: Yes (Other)
  Sender: FDA-Public Use
  Company Number: CA-ROCHE-2486748

PATIENT
  Sex: Male

DRUGS (3)
  1. OCREVUS [Suspect]
     Active Substance: OCRELIZUMAB
     Indication: Relapsing-remitting multiple sclerosis
     Dosage: 300 MG AT DAY 0 AND 14, THEN 600 MG EVERY 6 MONTH
     Route: 042
     Dates: start: 20180510
  2. OCREVUS [Suspect]
     Active Substance: OCRELIZUMAB
     Dosage: 600 MG EVERY 6 MONTH
     Route: 042
  3. COVID-19 VACCINE [Concomitant]
     Dosage: 24/MAY

REACTIONS (9)
  - Thoracic outlet syndrome [Not Recovered/Not Resolved]
  - Urinary retention [Unknown]
  - Ophthalmoplegia [Unknown]
  - Lhermitte^s sign [Not Recovered/Not Resolved]
  - Sciatica [Unknown]
  - Intervertebral disc annular tear [Not Recovered/Not Resolved]
  - Acne [Recovering/Resolving]
  - Increased upper airway secretion [Not Recovered/Not Resolved]
  - Pain in extremity [Recovered/Resolved]

NARRATIVE: CASE EVENT DATE: 20190101
